FAERS Safety Report 8757819 (Version 1)
Quarter: 2012Q4

REPORT INFORMATION
  Report Type: 
  Country: CN (occurrence: CN)
  Receive Date: 20120828
  Receipt Date: 20120828
  Transmission Date: 20130627
  Serious: Yes (Other)
  Sender: FDA-Public Use
  Company Number: CN-ROCHE-1108772

PATIENT

DRUGS (2)
  1. XELODA [Suspect]
     Indication: METASTATIC GASTRIC CANCER
     Dosage: On Day 1-14
  2. PACLITAXEL [Suspect]
     Indication: METASTATIC GASTRIC CANCER
     Dosage: 3 hour infusion on day 1 and 8.

REACTIONS (11)
  - Leukopenia [Unknown]
  - Alopecia [Unknown]
  - Neutropenia [Unknown]
  - Fatigue [Unknown]
  - Nausea [Unknown]
  - Vomiting [Unknown]
  - Palmar-plantar erythrodysaesthesia syndrome [Unknown]
  - Diarrhoea [Unknown]
  - Neurotoxicity [Unknown]
  - Hepatic function abnormal [Unknown]
  - Anaphylactic shock [Unknown]
